FAERS Safety Report 8773349 (Version 1)
Quarter: 2012Q4

REPORT INFORMATION
  Report Type: 
  Country: US (occurrence: US)
  Receive Date: 20120907
  Receipt Date: 20120907
  Transmission Date: 20130627
  Serious: Yes (Hospitalization)
  Sender: FDA-Public Use
  Company Number: US-PFIZER INC-2012219718

PATIENT
  Age: 71 Year
  Sex: Female
  Weight: 72.56 kg

DRUGS (8)
  1. LYRICA [Suspect]
     Indication: FIBROMYALGIA
     Dosage: UNK, 2x/day
     Dates: start: 201206, end: 20120808
  2. CYMBALTA [Concomitant]
     Indication: ARTHRITIS
     Dosage: 20 mg, 2x/day
  3. DEPAKOTE [Concomitant]
     Indication: MIGRAINE
     Dosage: 250 mg, daily
  4. SYNTHROID [Concomitant]
     Indication: IODINE DEFICIENCY
     Dosage: 75 mg, weekly
  5. ZANAFLEX [Concomitant]
     Indication: MUSCLE RELAXANT THERAPY
     Dosage: one and a half tablet of 4 mg daily
     Route: 048
     Dates: start: 2011
  6. LOPRESSOR [Concomitant]
     Indication: HYPERTENSION
     Dosage: 50 mg, 2x/day
  7. ASACOL [Concomitant]
     Indication: COLITIS ULCERATIVE
     Dosage: 200 mg, 2x/day
  8. OMEPRAZOLE [Concomitant]
     Indication: GASTROOESOPHAGEAL REFLUX DISEASE
     Dosage: 20 mg, daily

REACTIONS (3)
  - Hypersensitivity [Not Recovered/Not Resolved]
  - Dyspnoea [Not Recovered/Not Resolved]
  - Swelling face [Recovering/Resolving]
